FAERS Safety Report 5293027-1 (Version None)
Quarter: 2007Q2

REPORT INFORMATION
  Report Type: 
  Country: None (occurrence: None)
  Receive Date: 20070411
  Receipt Date: 20070405
  Transmission Date: 20071010
  Serious: Yes (Other)
  Sender: FDA-Public Use
  Company Number: 2007UW06773

PATIENT
  Age: 2 Year
  Sex: Female
  Weight: 10.9 kg

DRUGS (3)
  1. PULMICORT RESPULES [Suspect]
     Indication: WHEEZING
     Route: 055
  2. PULMICORT RESPULES [Suspect]
     Indication: HYPERSENSITIVITY
     Route: 055
  3. XOPENEX [Concomitant]

REACTIONS (3)
  - GENERALISED ERYTHEMA [None]
  - RESTLESSNESS [None]
  - UNRESPONSIVE TO STIMULI [None]
